FAERS Safety Report 6465500-1 (Version None)
Quarter: 2009Q4

REPORT INFORMATION
  Report Type: 
  Country: None (occurrence: None)
  Receive Date: 20091201
  Receipt Date: 20090430
  Transmission Date: 20100525
  Serious: No
  Sender: FDA-Public Use
  Company Number: US-AMGEN-KDL312747

PATIENT
  Sex: Female

DRUGS (4)
  1. ENBREL [Suspect]
     Indication: PSORIATIC ARTHROPATHY
     Route: 058
     Dates: start: 20081003, end: 20081101
  2. METHOTREXATE [Concomitant]
     Route: 048
     Dates: start: 20080701, end: 20090201
  3. CELEBREX [Concomitant]
     Dates: start: 20080501
  4. DITROPAN [Concomitant]

REACTIONS (1)
  - DERMATITIS ALLERGIC [None]
